FAERS Safety Report 7440020-6 (Version None)
Quarter: 2011Q2

REPORT INFORMATION
  Report Type: 
  Country: None (occurrence: None)
  Receive Date: 20110427
  Receipt Date: 20110414
  Transmission Date: 20111010
  Serious: Yes (Hospitalization, Other)
  Sender: FDA-Public Use
  Company Number: PHHY2011JP17123

PATIENT
  Sex: Male
  Weight: 49 kg

DRUGS (10)
  1. LOXONIN [Concomitant]
     Dosage: 180 MG, UNK
     Route: 048
  2. MUCOSTA [Concomitant]
     Dosage: 200 MG
     Route: 048
  3. BLOPRESS [Concomitant]
     Dosage: 8 MG
     Route: 048
  4. CALCIUM CARBONATE [Concomitant]
     Dosage: 3000 MG, UNK
     Route: 048
  5. FAMVIR [Suspect]
     Indication: HERPES ZOSTER
     Dosage: 250 MG QD
     Route: 048
     Dates: start: 20110223, end: 20110223
  6. ALFAROL [Concomitant]
     Dosage: 0.25 UG
     Route: 048
  7. NORVASC [Concomitant]
     Dosage: 5 MG
     Route: 048
  8. METHYCOBAL [Concomitant]
     Dosage: 3000 MCG
     Route: 048
  9. FAMVIR [Suspect]
     Dosage: 250 MG, QD
     Route: 048
     Dates: start: 20110225, end: 20110225
  10. FAMVIR [Suspect]
     Dosage: 500 MG, QD, 1500 MG DAILY DOSE
     Route: 048
     Dates: start: 20110226, end: 20110228

REACTIONS (12)
  - BLOOD PRESSURE SYSTOLIC INCREASED [None]
  - DRUG ADMINISTRATION ERROR [None]
  - HAEMOGLOBIN DECREASED [None]
  - HAEMATOCRIT DECREASED [None]
  - RED BLOOD CELL COUNT INCREASED [None]
  - MYOCLONUS [None]
  - DRUG LEVEL INCREASED [None]
  - BLOOD CREATININE INCREASED [None]
  - REFLEXES ABNORMAL [None]
  - BLOOD ALBUMIN DECREASED [None]
  - BLOOD UREA INCREASED [None]
  - HEART RATE INCREASED [None]
